FAERS Safety Report 4616273-6 (Version None)
Quarter: 2005Q1

REPORT INFORMATION
  Report Type: 
  Country: None (occurrence: None)
  Receive Date: 20050321
  Receipt Date: 20050306
  Transmission Date: 20050727
  Serious: Yes (Other)
  Sender: FDA-Public Use
  Company Number: 2005042564

PATIENT
  Age: 12 Year
  Sex: Female

DRUGS (2)
  1. VORICONAZOLE (VORICONAZOLE) [Suspect]
     Indication: ASPERGILLOSIS
     Dosage: UNKNOWN
     Route: 065
  2. CASPOFUNGIN (CASPOFUNGIN) [Suspect]
     Indication: ASPERGILLOSIS
     Dosage: UNKNOWN
     Route: 065

REACTIONS (4)
  - CANDIDA SEPSIS [None]
  - GRAFT VERSUS HOST DISEASE [None]
  - PULMONARY MYCOSIS [None]
  - ZYGOMYCOSIS [None]
